FAERS Safety Report 15750150 (Version 1)
Quarter: 2018Q4

REPORT INFORMATION
  Report Type: Report from Study
  Country: US (occurrence: US)
  Receive Date: 20181221
  Receipt Date: 20181221
  Transmission Date: 20190205
  Serious: Yes (Hospitalization)
  Sender: FDA-Public Use
  Company Number: US-EISAI MEDICAL RESEARCH-EC-2018-047279

PATIENT
  Age: 53 Year
  Sex: Male

DRUGS (5)
  1. LENVIMA [Suspect]
     Active Substance: LENVATINIB
     Indication: HEPATOCELLULAR CARCINOMA
     Route: 048
     Dates: start: 20181001, end: 20181213
  2. ASPIRIN. [Concomitant]
     Active Substance: ASPIRIN
  3. ENALAPRIL [Concomitant]
     Active Substance: ENALAPRIL
  4. METOPROLOL. [Concomitant]
     Active Substance: METOPROLOL
  5. VIREAD [Concomitant]
     Active Substance: TENOFOVIR DISOPROXIL FUMARATE

REACTIONS (10)
  - Decreased appetite [Recovering/Resolving]
  - Dysgeusia [Recovering/Resolving]
  - Abdominal discomfort [Recovering/Resolving]
  - Pain [Not Recovered/Not Resolved]
  - Gastrointestinal perforation [Unknown]
  - Blood pressure increased [Not Recovered/Not Resolved]
  - Skin fissures [Not Recovered/Not Resolved]
  - Aphonia [Recovering/Resolving]
  - Nasopharyngitis [Recovering/Resolving]
  - Nausea [Recovering/Resolving]

NARRATIVE: CASE EVENT DATE: 2018
